FAERS Safety Report 21568782 (Version 1)
Quarter: 2022Q4

REPORT INFORMATION
  Report Type: Report from Study
  Country: US (occurrence: US)
  Receive Date: 20221108
  Receipt Date: 20221108
  Transmission Date: 20230112
  Serious: Yes (Hospitalization, Other)
  Sender: FDA-Public Use
  Company Number: US-ABBVIE-4191523

PATIENT
  Sex: Male

DRUGS (2)
  1. HUMIRA [Suspect]
     Active Substance: ADALIMUMAB
     Indication: Crohn^s disease
     Route: 058
  2. HUMIRA [Suspect]
     Active Substance: ADALIMUMAB
     Indication: Rheumatoid arthritis

REACTIONS (6)
  - Intestinal obstruction [Unknown]
  - Vomiting [Unknown]
  - COVID-19 [Recovered/Resolved]
  - Intestinal resection [Unknown]
  - Abdominal pain upper [Recovered/Resolved]
  - Adverse food reaction [Unknown]

NARRATIVE: CASE EVENT DATE: 20190101
